FAERS Safety Report 18509675 (Version 1)
Quarter: 2020Q4

REPORT INFORMATION
  Report Type: Spontaneous
  Country: US (occurrence: US)
  Receive Date: 20201117
  Receipt Date: 20201117
  Transmission Date: 20210114
  Serious: Yes (Hospitalization)
  Sender: FDA-Public Use
  Company Number: US-TEVA-2020-US-1849946

PATIENT
  Sex: Male

DRUGS (17)
  1. KADIAN [Suspect]
     Active Substance: MORPHINE SULFATE
     Route: 064
  2. NORCO [Suspect]
     Active Substance: ACETAMINOPHEN\HYDROCODONE BITARTRATE
     Route: 064
  3. OXYCODONE [Suspect]
     Active Substance: OXYCODONE
     Route: 064
  4. VICODIN [Suspect]
     Active Substance: ACETAMINOPHEN\HYDROCODONE BITARTRATE
     Route: 064
  5. LORTAB [Suspect]
     Active Substance: ACETAMINOPHEN\HYDROCODONE BITARTRATE
     Route: 064
  6. FENTORA [Suspect]
     Active Substance: FENTANYL CITRATE
     Indication: PRODUCT USED FOR UNKNOWN INDICATION
     Route: 064
  7. PERODAN [ACETYLSALICYLIC ACID/OXYCODONE HYDROCHLORIDE/OXYCODONE TEREPHTHALATE] [Suspect]
     Active Substance: ASPIRIN\OXYCODONE HYDROCHLORIDE\OXYCODONE TEREPHTHALATE
     Route: 064
  8. OPANA [Suspect]
     Active Substance: OXYMORPHONE HYDROCHLORIDE
     Route: 064
  9. HYDROMORPHONE [Suspect]
     Active Substance: HYDROMORPHONE
     Route: 064
  10. MS CONTIN [Suspect]
     Active Substance: MORPHINE SULFATE
     Route: 064
  11. ACTIQ [Suspect]
     Active Substance: FENTANYL CITRATE
     Indication: PRODUCT USED FOR UNKNOWN INDICATION
     Route: 064
  12. PERCOCET [Suspect]
     Active Substance: ACETAMINOPHEN\OXYCODONE HYDROCHLORIDE
     Route: 064
  13. OXYMORPHONE [Suspect]
     Active Substance: OXYMORPHONE
     Route: 064
  14. OXYCONTIN [Suspect]
     Active Substance: OXYCODONE HYDROCHLORIDE
     Route: 064
  15. DURAGESIC [Suspect]
     Active Substance: FENTANYL
     Route: 064
  16. OPANA ER [Suspect]
     Active Substance: OXYMORPHONE HYDROCHLORIDE
     Route: 064
  17. DILAUDID [Suspect]
     Active Substance: HYDROMORPHONE HYDROCHLORIDE
     Route: 064

REACTIONS (9)
  - Withdrawal syndrome [Unknown]
  - Pain [Unknown]
  - Tremor [Unknown]
  - Opisthotonus [Unknown]
  - Drug dependence [Unknown]
  - Drug withdrawal syndrome neonatal [Unknown]
  - Poor feeding infant [Unknown]
  - Foetal exposure during pregnancy [Unknown]
  - Crying [Unknown]
